FAERS Safety Report 6249658-5 (Version None)
Quarter: 2009Q2

REPORT INFORMATION
  Report Type: 
  Country: None (occurrence: None)
  Receive Date: 20090625
  Receipt Date: 20090609
  Transmission Date: 20091009
  Serious: Yes (Hospitalization)
  Sender: FDA-Public Use
  Company Number: DSA_33889_2009

PATIENT
  Age: 91 Year
  Sex: Male

DRUGS (8)
  1. DINISOR (DINISOR - DILTIAZEM HYDROCHLORIDE) 120 MG (NOT SPECIFIED) [Suspect]
     Indication: DRUG USE FOR UNKNOWN INDICATION
     Dosage: DF ORAL
     Route: 048
     Dates: start: 20070101
  2. ELORGAN [Concomitant]
  3. LOPID [Concomitant]
  4. MOLSIDAIN [Concomitant]
  5. NOBRITOL [Concomitant]
  6. NORVASC [Concomitant]
  7. TRANXILIUM [Concomitant]
  8. TROMALYT [Concomitant]

REACTIONS (6)
  - ATRIAL FIBRILLATION [None]
  - BUNDLE BRANCH BLOCK RIGHT [None]
  - CARDIOMEGALY [None]
  - MITRAL VALVE INCOMPETENCE [None]
  - PULMONARY HYPERTENSION [None]
  - TRICUSPID VALVE INCOMPETENCE [None]
